FAERS Safety Report 4600586-8 (Version None)
Quarter: 2005Q1

REPORT INFORMATION
  Report Type: 
  Country: None (occurrence: None)
  Receive Date: 20050304
  Receipt Date: 20050222
  Transmission Date: 20050727
  Serious: Yes (Hospitalization, Other)
  Sender: FDA-Public Use
  Company Number: 2004116154

PATIENT
  Age: 40 Year
  Sex: Female

DRUGS (3)
  1. BEXTRA [Suspect]
     Indication: ILL-DEFINED DISORDER
     Dosage: ORAL
     Route: 048
     Dates: start: 20040915, end: 20040920
  2. ERGOCALCIFEROL (ERGOCALCIFEROL) [Concomitant]
  3. CALCIUM (CALCIUM) [Concomitant]

REACTIONS (4)
  - ANAPHYLACTIC SHOCK [None]
  - HORDEOLUM [None]
  - RENAL DISORDER [None]
  - URTICARIA [None]
